FAERS Safety Report 25379793 (Version 1)
Quarter: 2025Q2

REPORT INFORMATION
  Report Type: Spontaneous
  Country: US (occurrence: None)
  Receive Date: 20250530
  Receipt Date: 20250530
  Transmission Date: 20250717
  Serious: Yes (Other)
  Sender: FDA-CTU
  Company Number: None

PATIENT
  Age: 54 Year
  Sex: Female
  Weight: 76.5 kg

DRUGS (1)
  1. QUETIAPINE FUMARATE [Suspect]
     Active Substance: QUETIAPINE FUMARATE
     Indication: Insomnia
     Dosage: OTHER QUANTITY : 1 TABLET(S);?FREQUENCY : TWICE A DAY;?
     Route: 048

REACTIONS (30)
  - Off label use [None]
  - Tremor [None]
  - Sensory disturbance [None]
  - Visual impairment [None]
  - Photopsia [None]
  - Blepharospasm [None]
  - Tinnitus [None]
  - Hot flush [None]
  - Hyperhidrosis [None]
  - Alopecia [None]
  - Skin disorder [None]
  - Constipation [None]
  - Insomnia [None]
  - Paradoxical drug reaction [None]
  - Adverse drug reaction [None]
  - Injury [None]
  - Pain of skin [None]
  - Headache [None]
  - Autoimmune disorder [None]
  - Bladder disorder [None]
  - Electric shock sensation [None]
  - Discomfort [None]
  - Eye pain [None]
  - Ocular discomfort [None]
  - Weight increased [None]
  - Neuropathy peripheral [None]
  - Eye swelling [None]
  - Gluten sensitivity [None]
  - Cardiac disorder [None]
  - Nervous system disorder [None]

NARRATIVE: CASE EVENT DATE: 20230308
